FAERS Safety Report 5650862-5 (Version None)
Quarter: 2008Q1

REPORT INFORMATION
  Report Type: 
  Country: None (occurrence: None)
  Receive Date: 20080131
  Receipt Date: 20071207
  Transmission Date: 20080703
  Serious: No
  Sender: FDA-Public Use
  Company Number: US200712001817

PATIENT
  Age: 47 Year
  Sex: Male

DRUGS (3)
  1. BYETTA [Suspect]
     Indication: TYPE 2 DIABETES MELLITUS
     Dosage: 5 UG, 2/D, SUBCUTANEOUS
     Route: 058
     Dates: start: 20071205
  2. METFORMIN HCL [Concomitant]
  3. GLIPIZIDE XL (GLIPIZIDE) [Concomitant]

REACTIONS (4)
  - ANXIETY [None]
  - BLOOD GLUCOSE DECREASED [None]
  - DIZZINESS [None]
  - DRUG INEFFECTIVE [None]
